FAERS Safety Report 5318112-7 (Version None)
Quarter: 2007Q1

REPORT INFORMATION
  Report Type: 
  Country: None (occurrence: None)
  Receive Date: 20070201
  Receipt Date: 20060511
  Transmission Date: 20070707
  Serious: Yes (Hospitalization)
  Sender: FDA-Public Use
  Company Number: MEDI-0004565

PATIENT
  Age: 37 Year
  Sex: Female

DRUGS (2)
  1. ETHYOL [Suspect]
     Indication: RADIOTHERAPY
     Dosage: 1 IN 1 D, SUBCUTANEOUS
     Route: 058
     Dates: start: 20060503
  2. RADIATION THERAPY [Concomitant]

REACTIONS (1)
  - TACHYCARDIA [None]
